FAERS Safety Report 18971426 (Version 1)
Quarter: 2021Q1

REPORT INFORMATION
  Report Type: Spontaneous
  Country: US (occurrence: US)
  Receive Date: 20210305
  Receipt Date: 20210305
  Transmission Date: 20210420
  Serious: Yes (Hospitalization)
  Sender: FDA-Public Use
  Company Number: US-PROCTER+GAMBLE-PH21001840

PATIENT

DRUGS (1)
  1. VICKS VAPOSHOWER (CAMPHOR (SYNTHETIC)\EUCALYPTUS OIL\MENTHOL) [Suspect]
     Active Substance: CAMPHOR (SYNTHETIC)\EUCALYPTUS OIL\MENTHOL
     Dosage: 1/2 OF THE TABLET

REACTIONS (3)
  - Pruritus [Unknown]
  - Wrong technique in product usage process [Unknown]
  - Hypersensitivity [Unknown]
